FAERS Safety Report 8491927-2 (Version None)
Quarter: 2012Q3

REPORT INFORMATION
  Report Type: 
  Country: None (occurrence: None)
  Receive Date: 20120706
  Receipt Date: 20120321
  Transmission Date: 20120928
  Serious: No
  Sender: FDA-Public Use
  Company Number: US-GLAXOSMITHKLINE-A0970599A

PATIENT
  Age: 77 Year
  Sex: Female

DRUGS (8)
  1. NEURONTIN [Concomitant]
  2. PROPRANOLOL [Concomitant]
  3. JANUVIA [Concomitant]
  4. METFORMIN HCL [Concomitant]
  5. VAGINAL CREAM [Concomitant]
     Indication: VAGINAL DISORDER
  6. DIOVAN [Concomitant]
  7. NEXIUM [Concomitant]
  8. FLOVENT [Suspect]
     Indication: BRONCHITIS
     Dosage: 1PUFF PER DAY
     Route: 055
     Dates: start: 20120314

REACTIONS (4)
  - COUGH [None]
  - FEELING ABNORMAL [None]
  - MALAISE [None]
  - INCREASED UPPER AIRWAY SECRETION [None]
